FAERS Safety Report 7473130-8 (Version None)
Quarter: 2011Q2

REPORT INFORMATION
  Report Type: 
  Country: None (occurrence: None)
  Receive Date: 20110503
  Receipt Date: 20110419
  Transmission Date: 20111010
  Serious: Yes (Other)
  Sender: FDA-Public Use
  Company Number: 027947

PATIENT
  Sex: Male
  Weight: 51.8 kg

DRUGS (5)
  1. LEVETIRACETAM [Concomitant]
  2. VALPROIC ACID [Concomitant]
  3. LACOSAMIDE [Suspect]
     Indication: LETHARGY
     Dosage: (150 MG BID, ROUTE: GT)
     Dates: start: 20110128, end: 20110214
  4. LACOSAMIDE [Suspect]
     Indication: CONVULSION
     Dosage: (150 MG BID, ROUTE: GT)
     Dates: start: 20110128, end: 20110214
  5. TOPIRAMATE [Concomitant]

REACTIONS (1)
  - STATUS EPILEPTICUS [None]
